FAERS Safety Report 21154107 (Version 2)
Quarter: 2022Q3

REPORT INFORMATION
  Report Type: Spontaneous
  Country: US (occurrence: US)
  Receive Date: 20220801
  Receipt Date: 20220829
  Transmission Date: 20221027
  Serious: Yes (Other)
  Sender: FDA-Public Use
  Company Number: US-SUN PHARMACEUTICAL INDUSTRIES LTD-2022R1-346678

PATIENT

DRUGS (1)
  1. CARVEDILOL [Interacting]
     Active Substance: CARVEDILOL
     Indication: Product used for unknown indication
     Dosage: UNK
     Route: 065

REACTIONS (16)
  - Hyperthyroidism [Unknown]
  - Exophthalmos [Unknown]
  - Chest pain [Unknown]
  - Headache [Unknown]
  - Palpitations [Unknown]
  - Nightmare [Unknown]
  - Ocular discomfort [Unknown]
  - Insomnia [Unknown]
  - Nausea [Unknown]
  - Dry mouth [Unknown]
  - Fatigue [Unknown]
  - Eye pain [Unknown]
  - Product substitution issue [Unknown]
  - Drug interaction [Unknown]
  - Alopecia [Unknown]
  - Therapy cessation [Unknown]
